FAERS Safety Report 5866477-X (Version None)
Quarter: 2008Q3

REPORT INFORMATION
  Report Type: 
  Country: None (occurrence: None)
  Receive Date: 20080902
  Receipt Date: 20080902
  Transmission Date: 20090109
  Serious: Yes (Hospitalization)
  Sender: FDA-Public Use
  Company Number: PHEH1997US00750

PATIENT
  Sex: Female

DRUGS (11)
  1. SANDIMMUNE [Suspect]
     Route: 048
     Dates: start: 19961002
  2. OGEN [Concomitant]
  3. PRINIVIL [Concomitant]
  4. RIOPAN (MAGALDRATE) [Concomitant]
  5. MYCOSTATIN SUSPENSION (NYSTATIN) [Concomitant]
  6. VITAMIN E [Concomitant]
  7. COLACE (DOCUSATE SODIUM) [Concomitant]
  8. OMEPRAZOLE [Concomitant]
  9. EDECRINE (ETACRYNIC ACID) [Concomitant]
  10. IMURAN [Concomitant]
  11. PREDNISONE TAB [Concomitant]

REACTIONS (1)
  - CYTOMEGALOVIRUS INFECTION [None]
